FAERS Safety Report 8118861-1 (Version None)
Quarter: 2012Q1

REPORT INFORMATION
  Report Type: 
  Country: None (occurrence: None)
  Receive Date: 20120207
  Receipt Date: 20120127
  Transmission Date: 20120608
  Serious: Yes (Other)
  Sender: FDA-Public Use
  Company Number: US-ELI_LILLY_AND_COMPANY-US201202000160

PATIENT

DRUGS (1)
  1. ADCIRCA [Suspect]

REACTIONS (2)
  - HALLUCINATION [None]
  - FATIGUE [None]
